FAERS Safety Report 22207820 (Version 1)
Quarter: 2023Q2

REPORT INFORMATION
  Report Type: Spontaneous
  Country: US (occurrence: None)
  Receive Date: 20230413
  Receipt Date: 20230413
  Transmission Date: 20230722
  Serious: Yes (Hospitalization)
  Sender: FDA-Public Use
  Company Number: None

PATIENT
  Sex: Female

DRUGS (12)
  1. AMBRISENTAN [Suspect]
     Active Substance: AMBRISENTAN
     Indication: Pulmonary arterial hypertension
     Dosage: FREQUENCY : DAILY;?
     Route: 048
  2. CILOSTAZOL [Concomitant]
     Active Substance: CILOSTAZOL
  3. COLCRYS [Concomitant]
     Active Substance: COLCHICINE
  4. ADEMPAS [Concomitant]
     Active Substance: RIOCIGUAT
  5. LEVOCETIRIZINE DIHYDROCHL [Concomitant]
  6. FUROSEMIDE [Concomitant]
     Active Substance: FUROSEMIDE
  7. LETAIRIS [Concomitant]
     Active Substance: AMBRISENTAN
  8. LOVASTATIN [Concomitant]
     Active Substance: LOVASTATIN
  9. VALSARTAN/HYDROCHLOROTHIA [Concomitant]
  10. LEVOTHYROXINE SODIUM [Concomitant]
     Active Substance: LEVOTHYROXINE SODIUM
  11. ASPIRIN [Concomitant]
     Active Substance: ASPIRIN
  12. LINZESS [Concomitant]
     Active Substance: LINACLOTIDE

REACTIONS (5)
  - Wheezing [None]
  - Dyspnoea [None]
  - Weight decreased [None]
  - Fatigue [None]
  - Joint swelling [None]
